FAERS Safety Report 25037112 (Version 1)
Quarter: 2025Q1

REPORT INFORMATION
  Report Type: Spontaneous
  Country: JP (occurrence: JP)
  Receive Date: 20250304
  Receipt Date: 20250304
  Transmission Date: 20250408
  Serious: Yes (Hospitalization, Other)
  Sender: FERRING
  Company Number: JP-ferring-EVA202401751FERRINGPH

PATIENT

DRUGS (3)
  1. NOCDURNA [Suspect]
     Active Substance: DESMOPRESSIN ACETATE
     Indication: Nocturia
     Route: 048
     Dates: start: 20241116, end: 20241119
  2. TAMSULOSIN HYDROCHLORIDE [Concomitant]
     Active Substance: TAMSULOSIN HYDROCHLORIDE
     Indication: Benign prostatic hyperplasia
     Route: 065
  3. VIBEGRON [Concomitant]
     Active Substance: VIBEGRON
     Indication: Hypertonic bladder
     Route: 065
     Dates: start: 20241116

REACTIONS (7)
  - Hyponatraemia [Recovered/Resolved]
  - Cardiomegaly [Recovered/Resolved]
  - Pleural effusion [Recovered/Resolved]
  - Underdose [Recovered/Resolved]
  - Product use issue [Recovered/Resolved]
  - Labelled drug-disease interaction medication error [Recovered/Resolved]
  - Contraindicated product administered [Recovered/Resolved]

NARRATIVE: CASE EVENT DATE: 20241116
